FAERS Safety Report 7056631-6 (Version None)
Quarter: 2010Q4

REPORT INFORMATION
  Report Type: 
  Country: None (occurrence: None)
  Receive Date: 20101005
  Receipt Date: 20100922
  Transmission Date: 20110411
  Serious: Yes (Death, Other)
  Sender: FDA-Public Use
  Company Number: AECAN201000302

PATIENT
  Age: 65 Year
  Sex: Female
  Weight: 74.5 kg

DRUGS (47)
  1. GAMUNEX [Suspect]
     Indication: PARAINFLUENZAE VIRUS INFECTION
     Dosage: 160 GM; 1X; IV
     Route: 042
     Dates: start: 20100706, end: 20100706
  2. TACROLIMUS [Suspect]
     Indication: PRODUCT USED FOR UNKNOWN INDICATION
     Dosage: 2.5 MG; QD; PO
     Route: 048
     Dates: start: 20100610, end: 20100707
  3. FUROSEMIDE [Concomitant]
  4. IPRATROPIUM BROMIDE [Concomitant]
  5. SALBUTAMOL [Concomitant]
  6. DEXTROMETHORPHAN [Concomitant]
  7. MEGESTROL ACETATE [Concomitant]
  8. VENLAFAXINE [Concomitant]
  9. DOMPERIDONE [Concomitant]
  10. VENLAFAXINE [Concomitant]
  11. CLONAZEPAM [Concomitant]
  12. ACETAMINOPHEN [Concomitant]
  13. METOCLOPRAMIDE [Concomitant]
  14. VENLAFAXINE [Concomitant]
  15. PANTOPRAZOLE [Concomitant]
  16. MEGESTROL ACETATE [Concomitant]
  17. MAGNESIUM SULFATE [Concomitant]
  18. FLUCONAZOLE [Concomitant]
  19. SALBUTAMOL [Concomitant]
  20. ACYCLOVIR [Concomitant]
  21. MEGESTROL ACETATE [Concomitant]
  22. RANITIDINE [Concomitant]
  23. VENLAFAXINE [Concomitant]
  24. CLONAZEPAM [Concomitant]
  25. VENLAFAXINE [Concomitant]
  26. CODEINE LINCTUS [Concomitant]
  27. DOMPERIDONE [Concomitant]
  28. QUETIAPINE [Concomitant]
  29. CALCIUM CARBONATE W/VITAMIN D NOS [Concomitant]
  30. TIOTROPIUM [Concomitant]
  31. COTRIM [Concomitant]
  32. SENNOSIDES A+B [Concomitant]
  33. MAGIC MOUTHWASH [Concomitant]
  34. MAGNESIUM SULFATE [Concomitant]
  35. MAGNESIUM [Concomitant]
  36. VITAMIN K1 [Concomitant]
  37. PROCHLORPERAZINE [Concomitant]
  38. TRANEXAMIC ACID [Concomitant]
  39. CLONAZEPAM [Concomitant]
  40. CODEINE [Concomitant]
  41. RANITIDINE [Concomitant]
  42. METOCLOPRAMIDE [Concomitant]
  43. MAGNESIUM SULFATE [Concomitant]
  44. TRANEXAMIC ACID [Concomitant]
  45. PREDNISONE [Concomitant]
  46. FUROSEMIDE [Concomitant]
  47. CLONAZEPAM [Concomitant]

REACTIONS (4)
  - ANTI-HBS ANTIBODY POSITIVE [None]
  - EPSTEIN-BARR VIRUS ASSOCIATED LYMPHOPROLIFERATIVE DISORDER [None]
  - HEPATITIS B CORE ANTIGEN POSITIVE [None]
  - TRANSMISSION OF AN INFECTIOUS AGENT VIA A MEDICINAL PRODUCT [None]
